FAERS Safety Report 8397808-7 (Version None)
Quarter: 2012Q2

REPORT INFORMATION
  Report Type: 
  Country: None (occurrence: None)
  Receive Date: 20120531
  Receipt Date: 20120522
  Transmission Date: 20120825
  Serious: Yes (Hospitalization, Other)
  Sender: FDA-Public Use
  Company Number: US-US-EMD SERONO, INC.-7067316

PATIENT
  Sex: Male

DRUGS (1)
  1. REBIF [Suspect]
     Indication: MULTIPLE SCLEROSIS
     Route: 058
     Dates: start: 20100630

REACTIONS (10)
  - HEADACHE [None]
  - RECTAL HAEMORRHAGE [None]
  - INFECTIOUS MONONUCLEOSIS [None]
  - TUBERCULOSIS [None]
  - DECREASED APPETITE [None]
  - PYREXIA [None]
  - CARDIAC DISORDER [None]
  - HYPERHIDROSIS [None]
  - BLOOD URINE PRESENT [None]
  - CARDIAC VALVE DISEASE [None]
